FAERS Safety Report 9967673 (Version 1)
Quarter: 2014Q1

REPORT INFORMATION
  Report Type: Spontaneous
  Country: GB (occurrence: GB)
  Receive Date: 20140306
  Receipt Date: 20140306
  Transmission Date: 20141002
  Serious: Yes (Other)
  Sender: FDA-Public Use
  Company Number: GB-MYLANLABS-2014S1004177

PATIENT
  Age: 4 Decade
  Sex: 0

DRUGS (6)
  1. RISPERIDONE [Suspect]
     Route: 048
  2. LAMOTRIGINE [Suspect]
     Route: 048
  3. LAMOTRIGINE [Suspect]
     Dosage: MAXIMUM DOSE ON RECHALLENGE 200MG TWICE DAILY.
     Route: 048
     Dates: start: 201309, end: 20131104
  4. CLOBAZAM [Concomitant]
     Dosage: 10MG WHEN REQUIRED
     Dates: start: 20130601
  5. TOPIRAMATE [Concomitant]
     Dosage: 150MG TWICE DAILY
     Route: 048
     Dates: end: 20131115
  6. LEVETIRACETAM [Concomitant]
     Route: 048

REACTIONS (2)
  - Urticaria [Recovering/Resolving]
  - Dyspnoea [Unknown]
